FAERS Safety Report 6301275-4 (Version None)
Quarter: 2009Q3

REPORT INFORMATION
  Report Type: 
  Country: None (occurrence: None)
  Receive Date: 20090807
  Receipt Date: 20090805
  Transmission Date: 20100115
  Serious: Yes (Hospitalization)
  Sender: FDA-Public Use
  Company Number: AU-B.I. PHARMACEUTICALS,INC./RIDGEFIELD-2009-AU-00410AU

PATIENT
  Age: 80 Decade
  Sex: Female

DRUGS (1)
  1. ASASANTIN SR [Suspect]

REACTIONS (1)
  - CEREBROVASCULAR ACCIDENT [None]
